FAERS Safety Report 11231960 (Version 2)
Quarter: 2015Q3

REPORT INFORMATION
  Report Type: Report from Study
  Country: BR (occurrence: BR)
  Receive Date: 20150701
  Receipt Date: 20150722
  Transmission Date: 20151125
  Serious: Yes (Other)
  Sender: FDA-Public Use
  Company Number: BR-ABBVIE-10P-020-0637942-00

PATIENT
  Age: 51 Year
  Sex: Male
  Weight: 117 kg

DRUGS (1)
  1. HUMIRA [Suspect]
     Active Substance: ADALIMUMAB
     Indication: RHEUMATOID ARTHRITIS
     Route: 058
     Dates: start: 20061030

REACTIONS (7)
  - Serum ferritin increased [Recovered/Resolved]
  - Diabetes mellitus [Unknown]
  - Red blood cell count increased [Not Recovered/Not Resolved]
  - Asthma [Recovering/Resolving]
  - Dyspnoea [Recovering/Resolving]
  - Blood pressure abnormal [Not Recovered/Not Resolved]
  - Blood glucose increased [Not Recovered/Not Resolved]

NARRATIVE: CASE EVENT DATE: 200811
